FAERS Safety Report 7959721-6 (Version None)
Quarter: 2011Q4

REPORT INFORMATION
  Report Type: 
  Country: None (occurrence: None)
  Receive Date: 20111206
  Receipt Date: 20111108
  Transmission Date: 20120403
  Serious: Yes (Life-Threatening, Hospitalization, Disabling, Other)
  Sender: FDA-Public Use
  Company Number: US-GLAXOSMITHKLINE-A0952348A

PATIENT
  Age: 22 Year
  Sex: Male
  Weight: 65.5 kg

DRUGS (2)
  1. LAMOTRIGINE [Suspect]
     Indication: CONVULSION
     Route: 065
  2. KEPPRA [Concomitant]

REACTIONS (6)
  - EYE DISORDER [None]
  - MALNUTRITION [None]
  - STEVENS-JOHNSON SYNDROME [None]
  - DEHYDRATION [None]
  - MOUTH ULCERATION [None]
  - SKIN EXFOLIATION [None]
